FAERS Safety Report 5890927-6 (Version None)
Quarter: 2008Q3

REPORT INFORMATION
  Report Type: 
  Country: None (occurrence: None)
  Receive Date: 20080922
  Receipt Date: 20080912
  Transmission Date: 20090109
  Serious: Yes (Hospitalization)
  Sender: FDA-Public Use
  Company Number: A0731553A

PATIENT
  Age: 70 Year
  Sex: Male
  Weight: 121.4 kg

DRUGS (8)
  1. AVANDIA [Suspect]
     Dosage: 4MG PER DAY
     Route: 048
     Dates: start: 20000101, end: 20070621
  2. LIPITOR [Concomitant]
     Dates: start: 20030101
  3. MULTI-VITAMIN [Concomitant]
  4. CALCIUM PLUS D [Concomitant]
  5. DIOVAN [Concomitant]
  6. ALLOPURINOL [Concomitant]
  7. AMARYL [Concomitant]
  8. GLUCOTROL [Concomitant]

REACTIONS (2)
  - CARDIAC FAILURE CONGESTIVE [None]
  - MYOCARDIAL ISCHAEMIA [None]
